FAERS Safety Report 6789012-0 (Version None)
Quarter: 2010Q2

REPORT INFORMATION
  Report Type: 
  Country: None (occurrence: None)
  Receive Date: 20100623
  Receipt Date: 20080618
  Transmission Date: 20101027
  Serious: No
  Sender: FDA-Public Use
  Company Number: US-PFIZER INC-2008051963

PATIENT
  Sex: Male
  Weight: 78.636 kg

DRUGS (2)
  1. XALATAN [Suspect]
     Indication: INTRAOCULAR PRESSURE INCREASED
     Dates: start: 20080101
  2. ADVIL LIQUI-GELS [Concomitant]

REACTIONS (3)
  - EYE PAIN [None]
  - LACRIMATION INCREASED [None]
  - VISUAL IMPAIRMENT [None]
